FAERS Safety Report 7516676-6 (Version None)
Quarter: 2011Q2

REPORT INFORMATION
  Report Type: 
  Country: None (occurrence: None)
  Receive Date: 20110601
  Receipt Date: 20110526
  Transmission Date: 20111010
  Serious: Yes (Hospitalization, Other)
  Sender: FDA-Public Use
  Company Number: SE-ABBOTT-11P-150-0722722-00

PATIENT
  Sex: Male

DRUGS (3)
  1. LERGIGAN [Concomitant]
     Indication: PRODUCT USED FOR UNKNOWN INDICATION
  2. SIBUTRAMINE HYDROCHLORIDE MONOHYDRATE [Suspect]
     Indication: OBESITY
     Route: 048
     Dates: start: 20110323, end: 20110326
  3. CIRCADIN [Concomitant]
     Indication: PRODUCT USED FOR UNKNOWN INDICATION

REACTIONS (2)
  - PSYCHOTIC DISORDER [None]
  - BIPOLAR DISORDER [None]
